FAERS Safety Report 11178565 (Version 1)
Quarter: 2015Q2

REPORT INFORMATION
  Report Type: Report from Study
  Country: US (occurrence: US)
  Receive Date: 20150610
  Receipt Date: 20150610
  Transmission Date: 20150821
  Serious: Yes (Hospitalization, Other)
  Sender: FDA-Public Use
  Company Number: US-PURDUE PHARMA-USA-2015-0123961

PATIENT
  Age: 55 Year
  Sex: Female

DRUGS (1)
  1. BTDS PATCH [Suspect]
     Active Substance: BUPRENORPHINE
     Indication: PAIN
     Dosage: 10 MCG/HR, WEEKLY
     Route: 062
     Dates: start: 2010

REACTIONS (4)
  - Overdose [Unknown]
  - Loss of consciousness [Recovered/Resolved]
  - Respiration abnormal [Unknown]
  - Spinal operation [Recovered/Resolved]

NARRATIVE: CASE EVENT DATE: 201410
